FAERS Safety Report 8855479 (Version 1)
Quarter: 2012Q4

REPORT INFORMATION
  Report Type: 
  Country: US (occurrence: US)
  Receive Date: 20121023
  Receipt Date: 20121023
  Transmission Date: 20130627
  Serious: No
  Sender: FDA-Public Use
  Company Number: US-AMGEN-USASP2012060067

PATIENT
  Age: 70 Year
  Sex: Female
  Weight: 63.49 kg

DRUGS (9)
  1. ENBREL [Suspect]
     Indication: PRODUCT USED FOR UNKNOWN INDICATION
     Dosage: 50 mg, qwk
     Route: 058
  2. METHOTREXATE [Concomitant]
     Dosage: 2.5 mg, UNK
     Route: 048
  3. METHOTREXATE [Concomitant]
     Dosage: 50 mg, UNK
     Route: 058
  4. FOLIC ACID [Concomitant]
     Route: 048
  5. MAGNESIUM [Concomitant]
     Dosage: 200 mg, UNK
     Route: 048
  6. B-12 [Concomitant]
     Dosage: 1000 mug, UNK
     Route: 048
  7. CALCIUM +D3 [Concomitant]
     Route: 048
  8. TURMERIC                           /01079602/ [Concomitant]
     Dosage: 500 mg, UNK
     Route: 048
  9. GINGER                             /01646602/ [Concomitant]
     Dosage: 500 mg, UNK
     Route: 048

REACTIONS (4)
  - Back pain [Unknown]
  - Musculoskeletal pain [Unknown]
  - Arthralgia [Unknown]
  - Neck pain [Unknown]
